FAERS Safety Report 8086987 (Version 2)
Quarter: 2012Q4

REPORT INFORMATION
  Report Type: 
  Country: US (occurrence: US)
  Receive Date: 20110811
  Receipt Date: 20121004
  Transmission Date: 20130627
  Serious: Yes (Hospitalization)
  Sender: FDA-Public Use
  Company Number: US-BAYER-2011-070916

PATIENT
  Age: 32 Year
  Sex: Female

DRUGS (1)
  1. MAGNEVIST [Suspect]
     Indication: NUCLEAR MAGNETIC RESONANCE IMAGING ABDOMINAL
     Dosage: 20 ml, ONCE
     Route: 042
     Dates: start: 20110802, end: 20110802

REACTIONS (7)
  - Dyspnoea [None]
  - Bradypnoea [None]
  - Wheezing [None]
  - Swollen tongue [None]
  - Pallor [None]
  - Rash macular [None]
  - Pruritus [None]
